FAERS Safety Report 22626380 (Version 2)
Quarter: 2023Q2

REPORT INFORMATION
  Report Type: Spontaneous
  Country: ES (occurrence: ES)
  Receive Date: 20230621
  Receipt Date: 20230628
  Transmission Date: 20230722
  Serious: Yes (Life-Threatening, Hospitalization)
  Sender: FDA-Public Use
  Company Number: ES-MYLANLABS-2023M1064692

PATIENT
  Age: 9 Year
  Sex: Male

DRUGS (6)
  1. PHENYTOIN [Suspect]
     Active Substance: PHENYTOIN
     Indication: Status epilepticus
     Dosage: 20 MILLIGRAM/KILOGRAM
     Route: 065
     Dates: start: 201909
  2. LEVETIRACETAM [Suspect]
     Active Substance: LEVETIRACETAM
     Indication: Status epilepticus
     Dosage: 10 MILLIGRAM/KILOGRAM, QD
     Route: 065
     Dates: start: 201909
  3. VALPROATE [Suspect]
     Active Substance: VALPROIC ACID
     Indication: Status epilepticus
     Dosage: 20 MILLIGRAM/KILOGRAM (LOADING DOSE)
     Route: 065
     Dates: start: 201909
  4. MIDAZOLAM [Concomitant]
     Active Substance: MIDAZOLAM
     Indication: Status epilepticus
     Dosage: 0.2 MG/KG, 3 DOSES
     Route: 042
  5. MIDAZOLAM [Concomitant]
     Active Substance: MIDAZOLAM
     Dosage: 0.1 MG/KG/H
  6. MIDAZOLAM [Concomitant]
     Active Substance: MIDAZOLAM
     Dosage: 0.1 MG/KG, BOLUS

REACTIONS (1)
  - Drug ineffective [Unknown]
